FAERS Safety Report 4473780-7 (Version None)
Quarter: 2004Q3

REPORT INFORMATION
  Report Type: 
  Country: None (occurrence: None)
  Receive Date: 20040910
  Receipt Date: 20040810
  Transmission Date: 20050211
  Serious: No
  Sender: FDA-Public Use
  Company Number: 2004228301US

PATIENT
  Age: 51 Year
  Sex: Female
  Weight: 53.5 kg

DRUGS (2)
  1. BEXTRA [Suspect]
     Indication: EPICONDYLITIS
     Dosage: 200 MG, QD, ORAL
     Route: 048
     Dates: start: 20040701
  2. METOPROLOL [Concomitant]

REACTIONS (2)
  - DIARRHOEA [None]
  - NASAL DISCOMFORT [None]
